FAERS Safety Report 8395529-8 (Version None)
Quarter: 2012Q2

REPORT INFORMATION
  Report Type: 
  Country: None (occurrence: None)
  Receive Date: 20120530
  Receipt Date: 20110613
  Transmission Date: 20120825
  Serious: No
  Sender: FDA-Public Use
  Company Number: US-GLAXOSMITHKLINE-A0931314A

PATIENT
  Age: 69 Year
  Sex: Female

DRUGS (5)
  1. LORATADINE [Concomitant]
  2. VENTOLIN [Suspect]
     Indication: ASTHMA
     Dosage: 2PUFF FOUR TIMES PER DAY
     Route: 055
     Dates: start: 20100101
  3. LANTUS [Concomitant]
  4. ACIPHEX [Concomitant]
  5. GLYBURIDE [Concomitant]

REACTIONS (5)
  - INSOMNIA [None]
  - DRUG INEFFECTIVE [None]
  - PRODUCT QUALITY ISSUE [None]
  - COUGH [None]
  - WHEEZING [None]
